FAERS Safety Report 9250662 (Version 1)
Quarter: 2013Q1

REPORT INFORMATION
  Report Type: Spontaneous
  Country: US (occurrence: None)
  Receive Date: 20130305
  Receipt Date: 20130305
  Transmission Date: 20140127
  Serious: Yes (Other)
  Sender: FDA-Public Use
  Company Number: 163-21880-12100753

PATIENT
  Age: 62 Year
  Sex: Male

DRUGS (1)
  1. REVLIMID [Suspect]
     Indication: MYELODYSPLASTIC SYNDROME
     Dosage: 10 MG, AT BEDTIME, PO
     Route: 048
     Dates: start: 20120916, end: 20120927

REACTIONS (3)
  - Thrombocytopenia [None]
  - Fatigue [None]
  - Full blood count decreased [None]
